FAERS Safety Report 4684043-9 (Version None)
Quarter: 2005Q2

REPORT INFORMATION
  Report Type: 
  Country: None (occurrence: None)
  Receive Date: 20050525
  Receipt Date: 20040928
  Transmission Date: 20051028
  Serious: Yes (Other)
  Sender: FDA-Public Use
  Company Number: PHEH2004US10449

PATIENT

DRUGS (1)
  1. VOLTAREN [Suspect]
     Dosage: TOPICAL OPHTH.
     Route: 047

REACTIONS (1)
  - CORNEAL ULCER [None]
